FAERS Safety Report 13776791 (Version 6)
Quarter: 2019Q1

REPORT INFORMATION
  Report Type: Report from Study
  Country: US (occurrence: US)
  Receive Date: 20170720
  Receipt Date: 20190326
  Transmission Date: 20190417
  Serious: Yes (Death, Hospitalization, Other)
  Sender: FDA-Public Use
  Company Number: US-EMD SERONO-E2B_80058996

PATIENT
  Age: 59 Year
  Sex: Male

DRUGS (9)
  1. REBIF [Suspect]
     Active Substance: INTERFERON BETA-1A
     Route: 058
     Dates: start: 201706
  2. LISINOPRIL. [Concomitant]
     Active Substance: LISINOPRIL
     Indication: HYPERTENSION
     Dosage: DOSAGE ADJUSTED
  3. REBIF [Suspect]
     Active Substance: INTERFERON BETA-1A
     Indication: MULTIPLE SCLEROSIS
     Route: 058
     Dates: start: 20160511, end: 201706
  4. AMITRIPTYLINE [Concomitant]
     Active Substance: AMITRIPTYLINE
     Indication: PRODUCT USED FOR UNKNOWN INDICATION
  5. TIZANIDINE. [Suspect]
     Active Substance: TIZANIDINE
     Indication: PRODUCT USED FOR UNKNOWN INDICATION
  6. DULOXETINE. [Concomitant]
     Active Substance: DULOXETINE
     Indication: PRODUCT USED FOR UNKNOWN INDICATION
  7. TIZANIDINE. [Suspect]
     Active Substance: TIZANIDINE
     Dosage: DOSAGE REDUCED
  8. ATENOLOL. [Concomitant]
     Active Substance: ATENOLOL
     Indication: HYPERTENSION
     Dosage: DOSAGE ADJUSTED
  9. CEFEPIME [Suspect]
     Active Substance: CEFEPIME HYDROCHLORIDE
     Indication: SEPSIS
     Dates: start: 201706, end: 201706

REACTIONS (19)
  - Haemoglobin decreased [Unknown]
  - Depression [Not Recovered/Not Resolved]
  - Mobility decreased [Not Recovered/Not Resolved]
  - Blood pressure fluctuation [Recovering/Resolving]
  - Sepsis [Recovered/Resolved]
  - Mood altered [Unknown]
  - Hallucination [Recovering/Resolving]
  - Hypoxia [Fatal]
  - Urinary tract infection [Recovering/Resolving]
  - Post procedural haematuria [Recovering/Resolving]
  - Lethargy [Unknown]
  - Catheter site injury [Recovering/Resolving]
  - Bladder disorder [Not Recovered/Not Resolved]
  - Ventricular fibrillation [Fatal]
  - Cardiac arrest [Fatal]
  - Blood pressure decreased [Recovering/Resolving]
  - Respiratory failure [Fatal]
  - Aspiration [Fatal]
  - Neutropenia [Recovered/Resolved]

NARRATIVE: CASE EVENT DATE: 20170612
